FAERS Safety Report 10242093 (Version 1)
Quarter: 2014Q1

REPORT INFORMATION
  Report Type: Spontaneous
  Country: US (occurrence: None)
  Receive Date: 20140306
  Receipt Date: 20140306
  Transmission Date: 20141002
  Serious: Yes (Hospitalization)
  Sender: FDA-Public Use
  Company Number: 163-21880-13051882

PATIENT
  Age: 75 Year
  Sex: Female

DRUGS (1)
  1. REVLIMID (LENALIDOMIDE) (10 MILLIGRAM, CAPSULES) [Suspect]
     Indication: MYELODYSPLASTIC SYNDROME
     Dosage: MAR-2013 - TEMP. INTERRUPTED?10 MG, 28 IN 28 D, PO
     Route: 048
     Dates: start: 201303

REACTIONS (3)
  - Local swelling [None]
  - Pain [None]
  - Full blood count decreased [None]
